FAERS Safety Report 14019773 (Version 5)
Quarter: 2019Q1

REPORT INFORMATION
  Report Type: Spontaneous
  Country: US (occurrence: US)
  Receive Date: 20170928
  Receipt Date: 20190220
  Transmission Date: 20190417
  Serious: Yes (Disabling)
  Sender: FDA-Public Use
  Company Number: US-BAYER-2017-172925

PATIENT

DRUGS (1)
  1. CIPRO [Suspect]
     Active Substance: CIPROFLOXACIN HYDROCHLORIDE
     Indication: URINARY BLADDER SUSPENSION
     Dosage: UNK
     Dates: start: 20150213

REACTIONS (7)
  - Off label use [None]
  - Product use in unapproved indication [None]
  - Muscle tightness [None]
  - Fall [None]
  - Gait disturbance [Not Recovered/Not Resolved]
  - Pain [None]
  - Fall [None]

NARRATIVE: CASE EVENT DATE: 20190131
